FAERS Safety Report 7007646-5 (Version None)
Quarter: 2010Q3

REPORT INFORMATION
  Report Type: 
  Country: None (occurrence: None)
  Receive Date: 20100922
  Receipt Date: 20100910
  Transmission Date: 20110219
  Serious: Yes (Other)
  Sender: FDA-Public Use
  Company Number: IT-PFIZER INC-2010115065

PATIENT
  Age: 78 Year
  Sex: Female

DRUGS (3)
  1. LYRICA [Interacting]
     Indication: PHANTOM PAIN
     Dosage: 25 MG DAILY
  2. FLUCONAZOLE [Suspect]
     Indication: VULVOVAGINITIS
     Dosage: 200 MG, UNK
     Route: 042
  3. METRONIDAZOLE [Interacting]
     Indication: VULVOVAGINITIS
     Dosage: UNK

REACTIONS (8)
  - DISORIENTATION [None]
  - DRUG INTERACTION [None]
  - JOINT HYPEREXTENSION [None]
  - ORTHOSTATIC HYPOTENSION [None]
  - PARAESTHESIA [None]
  - POSTURE ABNORMAL [None]
  - SOMNOLENCE [None]
  - VISUAL ACUITY REDUCED [None]
